FAERS Safety Report 4845887-3 (Version None)
Quarter: 2005Q4

REPORT INFORMATION
  Report Type: 
  Country: None (occurrence: None)
  Receive Date: 20051206
  Receipt Date: 20050823
  Transmission Date: 20060501
  Serious: Yes (Hospitalization, Other)
  Sender: FDA-Public Use
  Company Number: 2005SE04891

PATIENT
  Age: 815 Month
  Sex: Male
  Weight: 65 kg

DRUGS (6)
  1. ATACAND [Suspect]
     Indication: CARDIAC FAILURE
     Route: 048
     Dates: start: 20050301, end: 20050715
  2. THYCAPZOL [Suspect]
     Indication: SECONDARY HYPERTHYROIDISM
     Dates: start: 20050413, end: 20050720
  3. MAREVAN [Concomitant]
     Dates: start: 20040101
  4. FUROSEMIDE [Concomitant]
     Dates: start: 20040101
  5. SELO-ZOK [Concomitant]
     Dates: start: 20040101
  6. CORDARONE [Concomitant]
     Indication: CARDIAC FAILURE
     Dates: start: 20041203, end: 20041208

REACTIONS (2)
  - CHOLESTASIS [None]
  - HEPATOTOXICITY [None]
